FAERS Safety Report 10776190 (Version 1)
Quarter: 2015Q1

REPORT INFORMATION
  Report Type: Other
  Country: US (occurrence: US)
  Receive Date: 20150209
  Receipt Date: 20150209
  Transmission Date: 20150721
  Serious: Yes (Death)
  Sender: FDA-Public Use
  Company Number: US-FRI-1000074275

PATIENT
  Age: 48 Year
  Sex: Male

DRUGS (5)
  1. ETHANOL (NONBEVERAGE) [Suspect]
     Active Substance: ALCOHOL
  2. DIPHENHYDRAMINE [Suspect]
     Active Substance: DIPHENHYDRAMINE
  3. DEXTROMETHORPHAN [Suspect]
     Active Substance: DEXTROMETHORPHAN
  4. DOXYLAMINE [Suspect]
     Active Substance: DOXYLAMINE
  5. CITALOPRAM [Suspect]
     Active Substance: CITALOPRAM HYDROBROMIDE

REACTIONS (3)
  - Cardiac arrest [None]
  - Respiratory arrest [None]
  - Drug abuse [Fatal]
